FAERS Safety Report 9102877 (Version 3)
Quarter: 2013Q1

REPORT INFORMATION
  Report Type: Spontaneous
  Country: DE (occurrence: DE)
  Receive Date: 20130218
  Receipt Date: 20130311
  Transmission Date: 20140127
  Serious: Yes (Hospitalization, Other)
  Sender: FDA-Public Use
  Company Number: DE-JNJFOC-20130208426

PATIENT
  Age: 51 Year
  Sex: Female

DRUGS (5)
  1. IBUPROFEN [Suspect]
     Indication: PRODUCT USED FOR UNKNOWN INDICATION
     Dosage: 50-100 TABLETS, SINGLE
     Route: 048
     Dates: start: 20130131
  2. METAMIZOLE [Suspect]
     Indication: PRODUCT USED FOR UNKNOWN INDICATION
     Dosage: 50-100 TABLETS, SINGLE
     Route: 048
     Dates: start: 20130131
  3. TARGIN [Suspect]
     Indication: PRODUCT USED FOR UNKNOWN INDICATION
     Dosage: 50-100 TABLETS, SINGLE (GENERIC NALOXONE/OXYCODONE)
     Route: 048
     Dates: start: 20130131
  4. PANTOZOL [Suspect]
     Indication: PRODUCT USED FOR UNKNOWN INDICATION
     Dosage: APPROXIMATELY 50 TABLETS
     Route: 048
     Dates: start: 20130131
  5. LYRICA [Suspect]
     Indication: PRODUCT USED FOR UNKNOWN INDICATION
     Dosage: 50-100 CAPSULES
     Route: 048
     Dates: start: 20130131

REACTIONS (4)
  - Intentional overdose [Unknown]
  - Suicide attempt [Unknown]
  - Somnolence [Recovered/Resolved]
  - Vomiting [Recovered/Resolved]
